FAERS Safety Report 10561293 (Version 1)
Quarter: 2014Q4

REPORT INFORMATION
  Report Type: Spontaneous
  Country: DE (occurrence: DE)
  Receive Date: 20141103
  Receipt Date: 20141103
  Transmission Date: 20150529
  Serious: Yes (Other)
  Sender: FDA-Public Use
  Company Number: DE-BANPHARM-20143173

PATIENT
  Age: 33 Year
  Sex: Female

DRUGS (3)
  1. FOLIC ACID. [Concomitant]
     Active Substance: FOLIC ACID
     Indication: PROPHYLAXIS OF NEURAL TUBE DEFECT
     Dates: start: 20101005
  2. IBUPROFEN UNKNOWN PRODUCT [Suspect]
     Active Substance: IBUPROFEN
     Indication: MIGRAINE
     Dosage: 600 MG, QD,
     Route: 048
     Dates: start: 20101005
  3. FLU VACCINE [Concomitant]
     Active Substance: INFLUENZA VIRUS VACCINE
     Indication: IMMUNISATION
     Dosage: ONCE BETWEEN WEEK 0 AND 8 GESTATION PERIOD
     Route: 030

REACTIONS (2)
  - Exposure during pregnancy [None]
  - Ductus arteriosus stenosis foetal [Recovered/Resolved]
